FAERS Safety Report 15741946 (Version 1)
Quarter: 2018Q4

REPORT INFORMATION
  Report Type: Spontaneous
  Country: US (occurrence: US)
  Receive Date: 20181219
  Receipt Date: 20181219
  Transmission Date: 20190205
  Serious: No
  Sender: FDA-Public Use
  Company Number: US-SEPTODONT-201804765

PATIENT
  Age: 40 Year
  Sex: Female

DRUGS (2)
  1. TOPICAL ANESTHETIC [Concomitant]
     Active Substance: BENZOCAINE
     Indication: DENTAL LOCAL ANAESTHESIA
     Dates: start: 20180621, end: 20180621
  2. CARBOCAINE [Suspect]
     Active Substance: MEPIVACAINE HYDROCHLORIDE
     Indication: DENTAL LOCAL ANAESTHESIA
     Dosage: BY NERVE BLOCK ON HEALTHY SITE
     Route: 004
     Dates: start: 20180621, end: 20180621

REACTIONS (5)
  - Pallor [Recovered/Resolved]
  - Anxiety [Recovered/Resolved]
  - Dizziness [Recovered/Resolved]
  - Muscle twitching [Recovered/Resolved]
  - Hypoaesthesia [Recovered/Resolved]

NARRATIVE: CASE EVENT DATE: 20180621
